FAERS Safety Report 16439599 (Version 10)
Quarter: 2019Q4

REPORT INFORMATION
  Report Type: Report from Study
  Country: US (occurrence: US)
  Receive Date: 20190617
  Receipt Date: 20191105
  Transmission Date: 20200122
  Serious: Yes (Other)
  Sender: FDA-Public Use
  Company Number: US-PFIZER INC-2019230567

PATIENT
  Age: 61 Year
  Sex: Female

DRUGS (2)
  1. IBRANCE [Suspect]
     Active Substance: PALBOCICLIB
     Indication: BREAST CANCER METASTATIC
     Dosage: 125 MG, CYCLIC (21 DAYS ON, 7 DAYS OFF)
     Route: 048
     Dates: start: 20190511
  2. ANASTROZOLE. [Concomitant]
     Active Substance: ANASTROZOLE
     Dosage: 1 MG, DAILY
     Dates: start: 201806

REACTIONS (29)
  - Pelvic pain [Not Recovered/Not Resolved]
  - Alopecia [Unknown]
  - Dyspnoea [Recovered/Resolved]
  - Oedema peripheral [Not Recovered/Not Resolved]
  - Bronchitis [Recovering/Resolving]
  - Cough [Recovering/Resolving]
  - Upper respiratory tract congestion [Unknown]
  - Pyrexia [Recovered/Resolved]
  - Abdominal distension [Recovering/Resolving]
  - Constipation [Recovering/Resolving]
  - Skin burning sensation [Unknown]
  - Oropharyngeal blistering [Unknown]
  - Renal failure [Unknown]
  - Tongue blistering [Unknown]
  - Feeling hot [Unknown]
  - Malaise [Unknown]
  - Productive cough [Unknown]
  - Fatigue [Recovering/Resolving]
  - Abdominal discomfort [Recovering/Resolving]
  - Chills [Unknown]
  - Nausea [Unknown]
  - Weight increased [Unknown]
  - Respiratory tract congestion [Unknown]
  - Vomiting [Recovered/Resolved]
  - Hot flush [Unknown]
  - Insomnia [Not Recovered/Not Resolved]
  - Pelvic discomfort [Not Recovered/Not Resolved]
  - Decreased appetite [Recovering/Resolving]
  - Fall [Unknown]

NARRATIVE: CASE EVENT DATE: 2019
